FAERS Safety Report 21379573 (Version 2)
Quarter: 2023Q1

REPORT INFORMATION
  Report Type: Spontaneous
  Country: US (occurrence: US)
  Receive Date: 20220927
  Receipt Date: 20230220
  Transmission Date: 20230418
  Serious: Yes (Other)
  Sender: FDA-Public Use
  Company Number: US-AMGEN-USASP2022162299

PATIENT
  Age: 73 Year
  Sex: Female
  Weight: 61.5 kg

DRUGS (1)
  1. PROLIA [Suspect]
     Active Substance: DENOSUMAB
     Indication: Osteoporosis postmenopausal
     Dosage: 120 UNK
     Route: 065
     Dates: start: 20220710

REACTIONS (4)
  - Chronic lymphocytic leukaemia [Unknown]
  - Fractured sacrum [Unknown]
  - Pelvic fracture [Unknown]
  - Spinal compression fracture [Unknown]

NARRATIVE: CASE EVENT DATE: 20221209
